FAERS Safety Report 25877584 (Version 1)
Quarter: 2025Q4

REPORT INFORMATION
  Report Type: Report from Study
  Country: CA (occurrence: CA)
  Receive Date: 20251003
  Receipt Date: 20251003
  Transmission Date: 20260117
  Serious: Yes (Other)
  Sender: SAMSUNG BIOEPIS
  Company Number: CA-SAMSUNG BIOEPIS-SB-2025-16179

PATIENT
  Age: 59 Year
  Sex: Male

DRUGS (4)
  1. RENFLEXIS [Suspect]
     Active Substance: INFLIXIMAB-ABDA
     Indication: Sarcoidosis
     Dates: start: 20250122, end: 20250402
  2. RENFLEXIS [Suspect]
     Active Substance: INFLIXIMAB-ABDA
     Dates: start: 20250513
  3. RENFLEXIS [Suspect]
     Active Substance: INFLIXIMAB-ABDA
  4. RENFLEXIS [Suspect]
     Active Substance: INFLIXIMAB-ABDA

REACTIONS (4)
  - Squamous cell carcinoma of head and neck [Unknown]
  - Thyroid mass [Unknown]
  - Nodule [Unknown]
  - Off label use [Unknown]

NARRATIVE: CASE EVENT DATE: 20250428
